FAERS Safety Report 7998262-7 (Version None)
Quarter: 2011Q4

REPORT INFORMATION
  Report Type: 
  Country: None (occurrence: None)
  Receive Date: 20111221
  Receipt Date: 20110531
  Transmission Date: 20120403
  Serious: No
  Sender: FDA-Public Use
  Company Number: US-GLAXOSMITHKLINE-A0929702A

PATIENT
  Age: 71 Year
  Sex: Male

DRUGS (2)
  1. LOVAZA [Suspect]
     Indication: BLOOD TRIGLYCERIDES INCREASED
     Dosage: 2G TWICE PER DAY
     Route: 048
     Dates: start: 20110301, end: 20110527
  2. METFORMIN HCL [Concomitant]

REACTIONS (1)
  - DYSGEUSIA [None]
